FAERS Safety Report 5010219-7 (Version None)
Quarter: 2006Q2

REPORT INFORMATION
  Report Type: 
  Country: None (occurrence: None)
  Receive Date: 20060404
  Receipt Date: 20051129
  Transmission Date: 20061013
  Serious: No
  Sender: FDA-Public Use
  Company Number: US200511003242

PATIENT
  Age: 51 Year
  Sex: Female

DRUGS (5)
  1. CYMBALTA [Suspect]
     Indication: DEPRESSION
     Dosage: 30 MG, DAILY (1/D)
     Dates: start: 20051122
  2. PROGRESTERONE (PROGESTERONE) [Concomitant]
  3. HORMONES AND RELATED AGENTS [Concomitant]
  4. EFFEXOR [Concomitant]
  5. ABILIFY [Concomitant]

REACTIONS (2)
  - DYSPNOEA [None]
  - SENSATION OF FOREIGN BODY [None]
